FAERS Safety Report 9646214 (Version 3)
Quarter: 2014Q2

REPORT INFORMATION
  Report Type: Spontaneous
  Country: US (occurrence: US)
  Receive Date: 20131025
  Receipt Date: 20140411
  Transmission Date: 20141212
  Serious: Yes (Other)
  Sender: FDA-Public Use
  Company Number: CHPA2013US016017

PATIENT
  Age: 80 Year
  Sex: Female

DRUGS (1)
  1. ACETYLSALICYLIC ACID [Suspect]
     Indication: AFTERBIRTH PAIN
     Dosage: 1 DF, QD
     Route: 048

REACTIONS (10)
  - Hypothyroidism [Not Recovered/Not Resolved]
  - Joint swelling [Recovered/Resolved]
  - Feeling hot [Recovered/Resolved]
  - Skin disorder [Recovered/Resolved]
  - Muscle spasms [Recovered/Resolved]
  - Musculoskeletal pain [Not Recovered/Not Resolved]
  - Erythema [Recovered/Resolved]
  - Herpes zoster [Recovered/Resolved]
  - Abdominal discomfort [Recovered/Resolved]
  - Pain [Not Recovered/Not Resolved]
